FAERS Safety Report 15353974 (Version 5)
Quarter: 2020Q3

REPORT INFORMATION
  Report Type: Report from Study
  Country: None (occurrence: KR)
  Receive Date: 20180905
  Receipt Date: 20200727
  Transmission Date: 20201102
  Serious: Yes (Hospitalization)
  Sender: FDA-Public Use
  Company Number: KR-ABBVIE-18K-090-2475332-00

PATIENT
  Age: 70 Year
  Sex: Female
  Weight: 54.5 kg

DRUGS (13)
  1. HUMIRA [Suspect]
     Active Substance: ADALIMUMAB
     Route: 058
     Dates: start: 20161221, end: 20161221
  2. DERMOVATE [Concomitant]
     Active Substance: CLOBETASOL
     Indication: ECZEMA
     Dosage: 0.05%
     Route: 061
     Dates: start: 20160706, end: 20171025
  3. HUMIRA [Suspect]
     Active Substance: ADALIMUMAB
     Indication: BEHCET^S SYNDROME
     Route: 058
     Dates: start: 20161207, end: 20161207
  4. MESALAZINE [Concomitant]
     Active Substance: MESALAMINE
     Indication: BEHCET^S SYNDROME
     Route: 048
     Dates: start: 20161124
  5. ACETAMINOPHEN. [Concomitant]
     Active Substance: ACETAMINOPHEN
     Indication: ABDOMINAL PAIN
     Route: 048
     Dates: start: 20161124, end: 201803
  6. VITAMEDIN [Concomitant]
     Active Substance: CYANOCOBALAMIN\PYRIDOXINE HYDROCHLORIDE\THIAMINE
     Indication: VITAMIN SUPPLEMENTATION
     Route: 048
     Dates: start: 20150527
  7. CELECOXIB. [Concomitant]
     Active Substance: CELECOXIB
     Indication: ABDOMINAL PAIN
     Route: 048
     Dates: start: 20160428, end: 201802
  8. DICAMAX [Concomitant]
     Indication: OSTEOPOROSIS
     Dosage: 1000
     Route: 048
     Dates: start: 20140626, end: 20171227
  9. CALCITRIOL. [Concomitant]
     Active Substance: CALCITRIOL
     Indication: OSTEOPOROSIS
     Route: 048
     Dates: start: 20130902
  10. IBANDRONIC ACID. [Concomitant]
     Active Substance: IBANDRONIC ACID
     Indication: OSTEOPOROSIS
     Route: 042
     Dates: start: 20161207, end: 20170914
  11. HUMIRA [Suspect]
     Active Substance: ADALIMUMAB
     Route: 058
     Dates: start: 20170104
  12. METHOTREXATE. [Concomitant]
     Active Substance: METHOTREXATE
     Indication: BEHCET^S SYNDROME
     Route: 048
     Dates: start: 20161124
  13. FOLIC ACID. [Concomitant]
     Active Substance: FOLIC ACID
     Indication: ANAEMIA PROPHYLAXIS
     Route: 048
     Dates: start: 20161124

REACTIONS (2)
  - Nasopharyngitis [Recovered/Resolved]
  - Behcet^s syndrome [Recovered/Resolved]

NARRATIVE: CASE EVENT DATE: 20170126
